FAERS Safety Report 17772326 (Version 2)
Quarter: 2025Q2

REPORT INFORMATION
  Report Type: Spontaneous
  Country: US (occurrence: US)
  Receive Date: 20200512
  Receipt Date: 20250519
  Transmission Date: 20250717
  Serious: No
  Sender: NOVO NORDISK
  Company Number: US-NOVOPROD-681171

PATIENT
  Age: 72 Year
  Sex: Female

DRUGS (2)
  1. NORDITROPIN [Suspect]
     Active Substance: SOMATROPIN
     Route: 058
  2. NORDITROPIN [Suspect]
     Active Substance: SOMATROPIN
     Indication: Product used for unknown indication
     Route: 058

REACTIONS (1)
  - Insulin-like growth factor decreased [Unknown]
